APPROVED DRUG PRODUCT: LEUCOVORIN CALCIUM
Active Ingredient: LEUCOVORIN CALCIUM
Strength: EQ 50MG BASE/VIAL
Dosage Form/Route: INJECTABLE;INJECTION
Application: A089628 | Product #001
Applicant: PHARMACHEMIE USA INC
Approved: Apr 17, 1997 | RLD: No | RS: No | Type: DISCN